FAERS Safety Report 7152338-5 (Version None)
Quarter: 2010Q4

REPORT INFORMATION
  Report Type: 
  Country: None (occurrence: None)
  Receive Date: 20101126
  Receipt Date: 20101116
  Transmission Date: 20110411
  Serious: Yes (Other)
  Sender: FDA-Public Use
  Company Number: BVT-000794

PATIENT
  Age: 17 Year
  Sex: Female

DRUGS (2)
  1. KINERET [Suspect]
     Indication: CHRONIC INFANTILE NEUROLOGICAL CUTANEOUS AND ARTICULAR SYNDROME
     Dosage: (100 MG QD SUBCUTANEOUS), (150 MG QD SUBCUTANEOUS)
     Route: 058
  2. ANTI-TUMOR NECROSIS FACTOR MONOCLON. ANTIBODY (CANAKINUMAB) [Suspect]
     Indication: CHRONIC INFANTILE NEUROLOGICAL CUTANEOUS AND ARTICULAR SYNDROME

REACTIONS (7)
  - DEAFNESS NEUROSENSORY [None]
  - DEHYDRATION [None]
  - GASTROENTERITIS [None]
  - HEADACHE [None]
  - ILL-DEFINED DISORDER [None]
  - RENAL FAILURE ACUTE [None]
  - UVEITIS [None]
